FAERS Safety Report 8012755-8 (Version None)
Quarter: 2011Q4

REPORT INFORMATION
  Report Type: 
  Country: None (occurrence: None)
  Receive Date: 20111229
  Receipt Date: 20111219
  Transmission Date: 20120403
  Serious: Yes (Other)
  Sender: FDA-Public Use
  Company Number: CA-JNJFOC-20111211756

PATIENT
  Sex: Female

DRUGS (7)
  1. STEROIDS NOS [Concomitant]
     Route: 050
  2. SIMPONI [Suspect]
     Indication: RHEUMATOID ARTHRITIS
     Route: 058
     Dates: start: 20091101
  3. PREDNISONE TAB [Concomitant]
     Route: 048
  4. IMURAN [Concomitant]
     Route: 048
  5. PANTOPRAZOLE SODIUM [Concomitant]
     Route: 048
  6. CRESTOR [Concomitant]
     Route: 048
  7. ENTOCORT EC [Concomitant]

REACTIONS (5)
  - BASAL CELL CARCINOMA [None]
  - ARTHRITIS [None]
  - CROHN'S DISEASE [None]
  - VARICELLA [None]
  - NASOPHARYNGITIS [None]
